FAERS Safety Report 9086014 (Version 1)
Quarter: 2013Q1

REPORT INFORMATION
  Report Type: Spontaneous
  Country: US (occurrence: US)
  Receive Date: 20130131
  Receipt Date: 20130131
  Transmission Date: 20140127
  Serious: No
  Sender: FDA-Public Use
  Company Number: US-ABBOTT-12P-163-1010347-00

PATIENT
  Age: 60 Year
  Sex: Male
  Weight: 90.8 kg

DRUGS (5)
  1. HUMIRA [Suspect]
     Indication: PSORIASIS
     Dates: start: 20121112, end: 20121112
  2. HUMIRA [Suspect]
     Indication: PSORIATIC ARTHROPATHY
  3. METHOTREXATE [Concomitant]
     Indication: PSORIATIC ARTHROPATHY
  4. METHOTREXATE [Concomitant]
     Indication: PSORIASIS
  5. FOLIC ACID [Concomitant]
     Indication: VITAMIN SUPPLEMENTATION

REACTIONS (2)
  - Injection site haemorrhage [Recovered/Resolved]
  - Injection site pain [Recovered/Resolved]
